FAERS Safety Report 4421955-5 (Version None)
Quarter: 2004Q3

REPORT INFORMATION
  Report Type: 
  Country: None (occurrence: None)
  Receive Date: 20040806
  Receipt Date: 20040729
  Transmission Date: 20050211
  Serious: Yes (Other)
  Sender: FDA-Public Use
  Company Number: 2004226232US

PATIENT
  Age: 58 Year
  Sex: Female

DRUGS (3)
  1. PROVERA [Suspect]
     Dosage: UNK, UNK, UNK
     Route: 065
     Dates: start: 19950101, end: 19990101
  2. PREMPHASE (PREMARIN;CYCRIN 14/14) [Suspect]
     Dosage: UNK, UNK, UNK
     Route: 065
     Dates: start: 19990101, end: 20000701
  3. PREMARIN [Suspect]
     Dosage: UNK, UNK, UNK
     Route: 065
     Dates: start: 20000101, end: 20000701

REACTIONS (1)
  - BREAST CANCER FEMALE [None]
